FAERS Safety Report 10018470 (Version 1)
Quarter: 2014Q1

REPORT INFORMATION
  Report Type: Spontaneous
  Country: US (occurrence: US)
  Receive Date: 20140318
  Receipt Date: 20140318
  Transmission Date: 20141002
  Serious: Yes (Other)
  Sender: FDA-Public Use
  Company Number: US-B.I. PHARMACEUTICALS,INC./RIDGEFIELD-2014-BI-10855BP

PATIENT
  Age: 68 Year
  Sex: Female
  Weight: 76 kg

DRUGS (5)
  1. AGGRENOX [Suspect]
     Indication: CARDIOVASCULAR EVENT PROPHYLAXIS
     Dosage: STRENGTH: 25 MG / 200 MG; DAILY DOSE: 50 MG/400 MG
     Route: 048
     Dates: start: 20131101, end: 20131130
  2. AGGRENOX [Suspect]
     Dosage: STRENGTH: 25 MG / 200 MG; DAILY DOSE: 50 MG/400 MG
     Route: 048
     Dates: start: 20140306
  3. PRILOSEC [Concomitant]
     Indication: ABDOMINAL DISCOMFORT
     Dosage: 20 MG
     Route: 048
     Dates: start: 201312
  4. LIPITOR [Concomitant]
     Indication: BLOOD CHOLESTEROL INCREASED
     Dosage: 40 MG
     Route: 048
     Dates: start: 201312
  5. LISINOPRIL HCTZ [Concomitant]
     Indication: HYPERTENSION
     Dosage: STRENGTH: 20 MG-25 MG; DAILY DOSE: 20 MG-25 MG
     Route: 048

REACTIONS (3)
  - Convulsion [Not Recovered/Not Resolved]
  - Transient ischaemic attack [Unknown]
  - Chest discomfort [Not Recovered/Not Resolved]
